FAERS Safety Report 9637438 (Version 3)
Quarter: 2014Q1

REPORT INFORMATION
  Report Type: Spontaneous
  Country: US (occurrence: US)
  Receive Date: 20131022
  Receipt Date: 20140123
  Transmission Date: 20141002
  Serious: Yes (Hospitalization, Other)
  Sender: FDA-Public Use
  Company Number: US-UCBSA-100894

PATIENT
  Age: 79 Year
  Sex: Male
  Weight: 79.3 kg

DRUGS (15)
  1. NEUPRO [Suspect]
     Indication: PARKINSON^S DISEASE
     Dosage: 2MG
  2. NEUPRO [Suspect]
     Indication: PARKINSON^S DISEASE
     Route: 062
  3. GABAPENTIN [Suspect]
     Indication: NEUROPATHY PERIPHERAL
     Dates: start: 201306, end: 201306
  4. NEXIUM [Concomitant]
     Indication: GASTROOESOPHAGEAL REFLUX DISEASE
  5. FOLBIC [Concomitant]
     Indication: VITAMIN B12 DEFICIENCY
     Dosage: 1 TABLET ONCE DAILY
  6. SECTRAL [Concomitant]
     Indication: HEART RATE
  7. AMIODARONE [Concomitant]
  8. PRADAXA [Concomitant]
     Indication: PROPHYLAXIS
  9. SINEMET [Concomitant]
     Indication: PARKINSON^S DISEASE
     Dosage: 25-100 MG
  10. RHINOCORT AQUA [Concomitant]
     Dosage: 1 NASAL SPRAY
  11. PACERONE [Concomitant]
  12. LOPID [Concomitant]
  13. AZILECT [Concomitant]
  14. AUGMENTIN [Concomitant]
  15. LEVOTHYROXINE [Concomitant]
     Dosage: 50 MCG ONCE DAILY

REACTIONS (9)
  - Atrial fibrillation [Unknown]
  - Arrhythmia [Recovered/Resolved]
  - Atrial flutter [Unknown]
  - Pneumonia [Recovered/Resolved]
  - Vertigo [Recovered/Resolved]
  - Dizziness [Unknown]
  - Vision blurred [Recovered/Resolved]
  - Hypotension [Recovered/Resolved]
  - Neuropathy peripheral [Unknown]
